FAERS Safety Report 8803822 (Version 2)
Quarter: 2012Q4

REPORT INFORMATION
  Report Type: 
  Country: RU (occurrence: RU)
  Receive Date: 20120923
  Receipt Date: 20121023
  Transmission Date: 20130627
  Serious: Yes (Hospitalization)
  Sender: FDA-Public Use
  Company Number: PHHY2012RU081909

PATIENT
  Sex: Male

DRUGS (5)
  1. DIOVAN [Suspect]
     Dosage: 240 mg (160 mg in morning + 80 mg in evening)
  2. DIOVAN [Suspect]
     Dosage: 240 mg (160 mg in morning + 80 mg in evening)
  3. DIOVAN [Suspect]
     Dosage: Dose increased
  4. OSMO-ADALAT [Concomitant]
  5. BETA BLOCKING AGENTS [Concomitant]

REACTIONS (5)
  - Renal colic [Unknown]
  - Pain [Recovered/Resolved]
  - Blood pressure increased [Unknown]
  - Cough [Unknown]
  - Drug ineffective [Unknown]
